FAERS Safety Report 24693326 (Version 1)
Quarter: 2024Q4

REPORT INFORMATION
  Report Type: Spontaneous
  Country: US (occurrence: US)
  Receive Date: 20241203
  Receipt Date: 20241203
  Transmission Date: 20250115
  Serious: No
  Sender: TEVA
  Company Number: US-TEVA-VS-3264901

PATIENT
  Age: 69 Year
  Sex: Female

DRUGS (1)
  1. MUPIROCIN [Suspect]
     Active Substance: MUPIROCIN
     Dosage: 2 %
     Route: 065

REACTIONS (8)
  - Skin weeping [Unknown]
  - Product use issue [Unknown]
  - Pain [Unknown]
  - Feeling abnormal [Unknown]
  - Skin burning sensation [Unknown]
  - Adverse event [Unknown]
  - Inappropriate schedule of product administration [Unknown]
  - Skin exfoliation [Unknown]
